FAERS Safety Report 16926898 (Version 1)
Quarter: 2019Q4

REPORT INFORMATION
  Report Type: Spontaneous
  Country: GB (occurrence: GB)
  Receive Date: 20191016
  Receipt Date: 20191016
  Transmission Date: 20200122
  Serious: Yes (Other)
  Sender: FDA-Public Use
  Company Number: GB-MYLANLABS-2019M1096939

PATIENT
  Age: 60 Year
  Sex: Male
  Weight: 65 kg

DRUGS (3)
  1. EFUDIX [Suspect]
     Active Substance: FLUOROURACIL
     Indication: PHOTODERMATOSIS
     Dosage: AT NIGHT TIME
     Route: 061
     Dates: start: 20190614, end: 20190711
  2. ZINC. [Concomitant]
     Active Substance: ZINC
     Dosage: 1 DOSAGE FORM, QD
  3. ASCORBIC ACID. [Concomitant]
     Active Substance: ASCORBIC ACID
     Dosage: 1 DOSAGE FORM, QD

REACTIONS (4)
  - Skin haemorrhage [Recovering/Resolving]
  - Skin irritation [Recovering/Resolving]
  - Skin ulcer [Recovering/Resolving]
  - Facial pain [Recovering/Resolving]

NARRATIVE: CASE EVENT DATE: 20190630
